FAERS Safety Report 18791606 (Version 1)
Quarter: 2021Q1

REPORT INFORMATION
  Report Type: Spontaneous
  Country: BR (occurrence: BR)
  Receive Date: 20210127
  Receipt Date: 20210127
  Transmission Date: 20210419
  Serious: Yes (Hospitalization)
  Sender: FDA-Public Use
  Company Number: BR-JNJFOC-20210135255

PATIENT
  Age: 74 Year
  Sex: Female

DRUGS (3)
  1. KETOROLAC [Suspect]
     Active Substance: KETOROLAC TROMETHAMINE
     Indication: ANALGESIC THERAPY
     Dosage: 30MG EACH 8 HOURS PRN
     Route: 042
     Dates: start: 20201231, end: 20210104
  2. XARELTO [Suspect]
     Active Substance: RIVAROXABAN
     Indication: DEEP VEIN THROMBOSIS
     Dosage: 15 MG, BID
     Route: 048
     Dates: start: 20210102, end: 20210105
  3. XARELTO [Suspect]
     Active Substance: RIVAROXABAN
     Indication: ANTICOAGULANT THERAPY

REACTIONS (3)
  - Hyperaemia [Recovering/Resolving]
  - Joint injury [Unknown]
  - Subcutaneous haematoma [Not Recovered/Not Resolved]

NARRATIVE: CASE EVENT DATE: 20210104
